FAERS Safety Report 21197047 (Version 1)
Quarter: 2022Q3

REPORT INFORMATION
  Report Type: Report from Study
  Country: US (occurrence: US)
  Receive Date: 20220810
  Receipt Date: 20220810
  Transmission Date: 20221027
  Serious: Yes (Hospitalization)
  Sender: FDA-Public Use
  Company Number: US-BIOVITRUM-2022US09411

PATIENT
  Sex: Male

DRUGS (5)
  1. SYNAGIS [Suspect]
     Active Substance: PALIVIZUMAB
     Indication: Antiviral prophylaxis
     Dosage: 100MG/1ML MONTHLY
  2. MOTRIN [Concomitant]
     Active Substance: IBUPROFEN
  3. LASIX [Concomitant]
     Active Substance: FUROSEMIDE
  4. VITAMIN D [Concomitant]
     Active Substance: VITAMIN D NOS
  5. INFANTS SILDENAFIL CITRATE [Concomitant]

REACTIONS (2)
  - Pyrexia [Recovering/Resolving]
  - Injection site warmth [Recovering/Resolving]
